FAERS Safety Report 8446420-X (Version None)
Quarter: 2012Q2

REPORT INFORMATION
  Report Type: 
  Country: None (occurrence: None)
  Receive Date: 20120618
  Receipt Date: 20120316
  Transmission Date: 20120825
  Serious: Yes (Other)
  Sender: FDA-Public Use
  Company Number: US-TEVA-328637USA

PATIENT
  Age: 59 Year
  Sex: Male

DRUGS (1)
  1. ACTIQ [Suspect]
     Indication: SPINAL PAIN
     Dosage: Q4/PRN
     Route: 002

REACTIONS (3)
  - WITHDRAWAL SYNDROME [None]
  - INCORRECT DOSE ADMINISTERED [None]
  - OFF LABEL USE [None]
